FAERS Safety Report 9564621 (Version 2)
Quarter: 2013Q4

REPORT INFORMATION
  Report Type: Spontaneous
  Country: US (occurrence: US)
  Receive Date: 20130930
  Receipt Date: 20131024
  Transmission Date: 20140711
  Serious: No
  Sender: FDA-Public Use
  Company Number: US-PFIZER INC-2013276771

PATIENT
  Age: 63 Year
  Sex: Female

DRUGS (19)
  1. LYRICA [Suspect]
     Indication: NEUROPATHY PERIPHERAL
     Dosage: 150 MG, 2X/DAY
     Route: 048
  2. ACIDOPHILUS [Concomitant]
     Dosage: 1 DF, DAILY
     Route: 048
  3. ADDERALL XR [Concomitant]
     Dosage: 30 MG, DAILY
     Route: 048
  4. ALEVE [Concomitant]
     Dosage: 220 MG, 1X/DAY (EVERY EVENING)
     Route: 048
  5. BACLOFEN [Concomitant]
     Indication: MUSCLE SPASMS
     Dosage: 20 MG TAKE ? TABLET (10 MG) EVERY DAY AS NEEDED
     Route: 048
  6. BIESTROGEN [Concomitant]
     Dosage: 1.25 MG, UNK
     Route: 060
  7. CALCIUM CARBONATE, VITAMIN D NOS [Concomitant]
     Dosage: 2400 MG, 1X/DAY (1200 MG TWO CHEWS)
     Route: 048
  8. CRANBERRY [Concomitant]
     Dosage: 3000 MG, DAILY
  9. ESTRIOL [Concomitant]
     Dosage: 1 MG, UNK
  10. MAGNESIUM [Concomitant]
     Dosage: 30 MG, 2 TO 3 TABLETS AT NIGHT
  11. MIRALAX [Concomitant]
     Dosage: 17 G, 1X/DAY
     Route: 048
  12. OMEGA 3-6-9 [Concomitant]
     Dosage: 1200 MG, DAILY
  13. OXYBUTYNIN CHLORIDE [Concomitant]
     Dosage: 5 MG, 1X/DAY
     Route: 048
  14. PRENATAL VITAMINS [Concomitant]
     Dosage: 1 DF, DAILY
     Route: 048
  15. PROGESTERON [Concomitant]
     Dosage: 200 MG, 2X/DAY
     Route: 048
  16. PROZAC [Concomitant]
     Dosage: 40 MG, 1X/DAY
     Route: 048
  17. TYLENOL EXTRA-STRENGTH [Concomitant]
     Dosage: 500 MG, 4X/DAY, EVERY 6 HOURS AS NEEDED
     Route: 048
  18. VITAMIN C [Concomitant]
     Dosage: 1000 MG, DAILY
  19. CALCIUM [Concomitant]
     Dosage: 1000 IU, UNK

REACTIONS (1)
  - Weight increased [Unknown]
